FAERS Safety Report 8924558 (Version 1)
Quarter: 2012Q4

REPORT INFORMATION
  Report Type: Spontaneous
  Country: US (occurrence: None)
  Receive Date: 20121116
  Receipt Date: 20121116
  Transmission Date: 20130627
  Serious: Yes (Other)
  Sender: FDA-Public Use
  Company Number: 2012P1063801

PATIENT
  Age: 78 Year
  Sex: Female

DRUGS (3)
  1. METOCLOPRAMIDE [Suspect]
     Indication: DIABETIC GASTROPARESIS
  2. LORAZEPAM [Concomitant]
  3. FLUOXETINE [Concomitant]

REACTIONS (8)
  - Dyspnoea [None]
  - Tachypnoea [None]
  - Anxiety [None]
  - Chest pain [None]
  - Headache [None]
  - Respiratory alkalosis [None]
  - Choking sensation [None]
  - Tardive dyskinesia [None]
